FAERS Safety Report 15703346 (Version 1)
Quarter: 2018Q4

REPORT INFORMATION
  Report Type: Spontaneous
  Country: US (occurrence: US)
  Receive Date: 20181209
  Receipt Date: 20181209
  Transmission Date: 20190205
  Serious: Yes (Hospitalization)
  Sender: FDA-Public Use
  Company Number: None

PATIENT
  Age: 71 Year
  Sex: Male

DRUGS (10)
  1. WARFARIN [Concomitant]
     Active Substance: WARFARIN
  2. MYRBETRIQ [Concomitant]
     Active Substance: MIRABEGRON
  3. DULOXETINE. [Concomitant]
     Active Substance: DULOXETINE
  4. CARVEDILOL. [Concomitant]
     Active Substance: CARVEDILOL
  5. MULTIPLE VITAMIN [Concomitant]
     Active Substance: VITAMINS
  6. GLATIRAMER [Suspect]
     Active Substance: GLATIRAMER
     Indication: MULTIPLE SCLEROSIS
     Dosage: ?          OTHER FREQUENCY:THREE TIMES WEEKLY;?
     Route: 058
     Dates: start: 20180601
  7. ATORVASTATIN [Concomitant]
     Active Substance: ATORVASTATIN
  8. IRBESARTAN. [Concomitant]
     Active Substance: IRBESARTAN
  9. TRAMADOL. [Concomitant]
     Active Substance: TRAMADOL
  10. ALFUZOSIN [Concomitant]
     Active Substance: ALFUZOSIN

REACTIONS (1)
  - Fall [None]

NARRATIVE: CASE EVENT DATE: 20181207
